FAERS Safety Report 9875123 (Version 1)
Quarter: 2014Q1

REPORT INFORMATION
  Report Type: Spontaneous
  Country: US (occurrence: None)
  Receive Date: 20140205
  Receipt Date: 20140205
  Transmission Date: 20141002
  Serious: No
  Sender: FDA-Public Use
  Company Number: None

PATIENT
  Age: 60 Year
  Sex: Female
  Weight: 59.88 kg

DRUGS (2)
  1. FLUCONAZOLE [Suspect]
     Indication: FUNGAL INFECTION
     Dosage: 150 MG TAB, ORAL.DAILY.
  2. METRONIDAZOLE GEL USP 0.75% [Suspect]
     Dosage: ONCE DAILY VAGINAL.

REACTIONS (1)
  - Pruritus generalised [None]
